FAERS Safety Report 5759521-1 (Version None)
Quarter: 2008Q2

REPORT INFORMATION
  Report Type: 
  Country: None (occurrence: None)
  Receive Date: 20080605
  Receipt Date: 20080526
  Transmission Date: 20081010
  Serious: Yes (Hospitalization, Other)
  Sender: FDA-Public Use
  Company Number: JP-NOVOPROD-275758

PATIENT
  Age: 67 Year
  Sex: Female
  Weight: 57 kg

DRUGS (7)
  1. INNOLET N CHU [Suspect]
     Indication: INSULIN-REQUIRING TYPE 2 DIABETES MELLITUS
     Dosage: 20 IU, UNK
     Route: 058
     Dates: start: 20060101, end: 20080526
  2. CRESTOR                            /01588602/ [Concomitant]
     Route: 048
     Dates: start: 20080430
  3. ASPIRIN [Concomitant]
     Indication: CEREBRAL INFARCTION
     Route: 048
  4. NORVASC                            /00972402/ [Concomitant]
     Route: 048
  5. ACTOS [Concomitant]
     Route: 048
  6. DIOVAN                             /01319601/ [Concomitant]
     Route: 048
  7. METFORMIN HCL [Concomitant]
     Dosage: UNK, UNK
     Route: 048

REACTIONS (3)
  - ANAPHYLACTIC SHOCK [None]
  - CEREBRAL INFARCTION [None]
  - INJECTION SITE ERYTHEMA [None]
